FAERS Safety Report 8531752-7 (Version None)
Quarter: 2012Q3

REPORT INFORMATION
  Report Type: 
  Country: None (occurrence: None)
  Receive Date: 20120723
  Receipt Date: 20120713
  Transmission Date: 20120928
  Serious: Yes (Hospitalization)
  Sender: FDA-Public Use
  Company Number: JP-CELGENEUS-087-21660-12072031

PATIENT
  Sex: Female
  Weight: 50 kg

DRUGS (8)
  1. ABRAXANE [Suspect]
     Dosage: 375 MILLIGRAM
     Route: 041
     Dates: start: 20111215, end: 20120119
  2. ABRAXANE [Suspect]
     Indication: BREAST CANCER METASTATIC
     Dosage: 375 MILLIGRAM
     Route: 041
     Dates: start: 20110208, end: 20111117
  3. LYRICA [Concomitant]
     Dosage: 150 MILLIGRAM
     Route: 048
     Dates: start: 20110825, end: 20111001
  4. ALLEGRA [Concomitant]
     Dosage: 60 MILLIGRAM
     Route: 048
     Dates: start: 20110825, end: 20110827
  5. LOBU [Concomitant]
     Dosage: 180 MILLIGRAM
     Route: 048
     Dates: start: 20110303, end: 20110317
  6. LYRICA [Concomitant]
     Dosage: 50 MILLIGRAM
     Route: 048
     Dates: start: 20110915
  7. NEO-MINOPHAGEN C [Concomitant]
     Dosage: 20 MILLILITER
     Route: 041
     Dates: start: 20110825, end: 20110825
  8. MUCOSTA [Concomitant]
     Dosage: 300 MILLIGRAM
     Route: 065
     Dates: start: 20110303, end: 20110317

REACTIONS (1)
  - HERPES ZOSTER [None]
